FAERS Safety Report 4861557-X (Version None)
Quarter: 2005Q4

REPORT INFORMATION
  Report Type: 
  Country: None (occurrence: None)
  Receive Date: 20051216
  Receipt Date: 20051130
  Transmission Date: 20060501
  Serious: Yes (Hospitalization)
  Sender: FDA-Public Use
  Company Number: EWC051046928

PATIENT
  Age: 69 Year
  Sex: Male

DRUGS (5)
  1. HUMULIN N [Suspect]
     Indication: DIABETES MELLITUS
     Dosage: 50 IU, 3/D, SUBCUTANEOUS
     Route: 058
  2. HUMULIN R [Suspect]
     Indication: DIABETES MELLITUS
     Dosage: 26 IU, 2/D, SUBCUTANEOUS
     Route: 058
  3. MINIPRESS [Concomitant]
  4. COVEREX (PERINDOPRIL) [Concomitant]
  5. HUMAPEN ERGO, BURG/CLEAR (HUMAPEN ERGO, BURGUNDY/CLEAR) PEN, REUSABLE [Concomitant]

REACTIONS (5)
  - DEVICE FAILURE [None]
  - DIABETIC COMPLICATION [None]
  - INFLAMMATION [None]
  - PHARMACEUTICAL PRODUCT COMPLAINT [None]
  - SKIN ULCER [None]
